FAERS Safety Report 11482081 (Version 5)
Quarter: 2015Q4

REPORT INFORMATION
  Report Type: Spontaneous
  Country: FR (occurrence: FR)
  Receive Date: 20150909
  Receipt Date: 20151103
  Transmission Date: 20160304
  Serious: Yes (Other)
  Sender: FDA-Public Use
  Company Number: FR-BIOGENIDEC-2015BI119920

PATIENT
  Age: 37 Year
  Sex: Female
  Weight: 96 kg

DRUGS (2)
  1. TECFIDERA [Suspect]
     Active Substance: DIMETHYL FUMARATE
     Indication: RELAPSING-REMITTING MULTIPLE SCLEROSIS
     Route: 048
     Dates: start: 20140902, end: 20150620
  2. UVEDOSE [Concomitant]
     Active Substance: CHOLECALCIFEROL
     Dates: start: 20121119

REACTIONS (3)
  - Keratoacanthoma [Unknown]
  - Anaplastic large cell lymphoma T- and null-cell types [Not Recovered/Not Resolved]
  - Lymphomatoid papulosis [Unknown]

NARRATIVE: CASE EVENT DATE: 20150520
